FAERS Safety Report 6212915-2 (Version None)
Quarter: 2009Q2

REPORT INFORMATION
  Report Type: 
  Country: None (occurrence: None)
  Receive Date: 20090603
  Receipt Date: 20090526
  Transmission Date: 20091009
  Serious: Yes (Hospitalization)
  Sender: FDA-Public Use
  Company Number: JP-AVENTIS-200910937JP

PATIENT
  Age: 78 Year
  Sex: Female
  Weight: 47.4 kg

DRUGS (8)
  1. ENOXAPARIN SODIUM [Suspect]
     Route: 058
     Dates: end: 20090202
  2. CEFAMEZIN                          /00288502/ [Concomitant]
     Route: 051
     Dates: start: 20090122, end: 20090128
  3. TAGAMET [Concomitant]
     Route: 048
     Dates: start: 20090123
  4. MEVALOTIN [Concomitant]
     Route: 048
     Dates: start: 20090123
  5. LOXONIN                            /00890701/ [Concomitant]
     Route: 048
     Dates: start: 20090123
  6. EVISTA [Concomitant]
     Route: 048
     Dates: start: 20090123
  7. MERISLON [Concomitant]
     Route: 048
     Dates: start: 20090123
  8. BLOPRESS [Concomitant]
     Route: 048
     Dates: start: 20090123

REACTIONS (1)
  - FEMUR FRACTURE [None]
